FAERS Safety Report 14449471 (Version 2)
Quarter: 2018Q2

REPORT INFORMATION
  Report Type: Spontaneous
  Country: GB (occurrence: GB)
  Receive Date: 20180127
  Receipt Date: 20180518
  Transmission Date: 20180711
  Serious: Yes (Death, Other)
  Sender: FDA-Public Use
  Company Number: GB-SUN PHARMACEUTICAL INDUSTRIES LTD-2018RR-160799

PATIENT
  Age: 23 Year
  Sex: Female

DRUGS (6)
  1. PREGABALIN. [Suspect]
     Active Substance: PREGABALIN
     Indication: PRODUCT USED FOR UNKNOWN INDICATION
     Dosage: UNK
     Route: 048
  2. SERTRALINE [Suspect]
     Active Substance: SERTRALINE HYDROCHLORIDE
     Indication: PRODUCT USED FOR UNKNOWN INDICATION
     Dosage: UNK
     Route: 065
  3. CODEINE [Suspect]
     Active Substance: CODEINE
     Indication: PRODUCT USED FOR UNKNOWN INDICATION
     Dosage: UNK
     Route: 065
  4. TRAMADOL. [Suspect]
     Active Substance: TRAMADOL
     Indication: PRODUCT USED FOR UNKNOWN INDICATION
     Dosage: UNK
     Route: 065
  5. DIAZEPAM. [Suspect]
     Active Substance: DIAZEPAM
     Indication: PRODUCT USED FOR UNKNOWN INDICATION
     Dosage: UNK
     Route: 065
  6. CANNABIS [Concomitant]
     Active Substance: CANNABIS SATIVA SUBSP. INDICA TOP
     Indication: PRODUCT USED FOR UNKNOWN INDICATION
     Dosage: UNK
     Route: 065

REACTIONS (16)
  - Potentiating drug interaction [Unknown]
  - Dysarthria [Unknown]
  - Gait disturbance [Unknown]
  - Alcohol abuse [Unknown]
  - Muscle tightness [Unknown]
  - Feeling cold [Unknown]
  - Cyanosis [Unknown]
  - Drug dependence [Unknown]
  - Pneumonia [Fatal]
  - Toxicity to various agents [Fatal]
  - Alcohol abuse [Unknown]
  - Foaming at mouth [Unknown]
  - Aggression [Unknown]
  - Depressed level of consciousness [Not Recovered/Not Resolved]
  - Drug abuse [Fatal]
  - Agitation [Unknown]

NARRATIVE: CASE EVENT DATE: 201608
